FAERS Safety Report 5580972-2 (Version None)
Quarter: 2007Q4

REPORT INFORMATION
  Report Type: 
  Country: None (occurrence: None)
  Receive Date: 20071130
  Receipt Date: 20070713
  Transmission Date: 20080405
  Serious: No
  Sender: FDA-Public Use
  Company Number: US200707004128

PATIENT
  Age: 65 Year
  Sex: Male

DRUGS (16)
  1. BYETTA [Suspect]
     Indication: TYPE 2 DIABETES MELLITUS
     Dosage: 5 UG, 2/D, SUBCUTANEOUS ; 10 UG, 2/D, SUBCUTANEOUS
     Route: 058
  2. LASIX /USA/ (FUROSEMIDE) [Concomitant]
  3. POTASSIUM (POTASSIUM) [Concomitant]
  4. COREG [Concomitant]
  5. TORSEMIDE [Concomitant]
  6. ZYRTEC [Concomitant]
  7. SYNTHROID [Concomitant]
  8. TRICOR [Concomitant]
  9. CRESTOR [Concomitant]
  10. SINGULAIR [Concomitant]
  11. AVAPRO [Concomitant]
  12. COUMADIN [Concomitant]
  13. TOPAMAX [Concomitant]
  14. SPIRIVA [Concomitant]
  15. PULMICORT [Concomitant]
  16. AZMACORT [Concomitant]

REACTIONS (4)
  - CONJUNCTIVITIS [None]
  - DIARRHOEA [None]
  - RETCHING [None]
  - VOMITING [None]
